FAERS Safety Report 5913964-1 (Version None)
Quarter: 2008Q4

REPORT INFORMATION
  Report Type: 
  Country: None (occurrence: None)
  Receive Date: 20081009
  Receipt Date: 20081001
  Transmission Date: 20090506
  Serious: Yes (Other)
  Sender: FDA-Public Use
  Company Number: US-ABBOTT-08P-163-0479463-00

PATIENT
  Sex: Male
  Weight: 69 kg

DRUGS (20)
  1. HUMIRA [Suspect]
     Indication: RHEUMATOID ARTHRITIS
     Route: 058
     Dates: start: 20050801, end: 20060501
  2. GOLIMUMAB (BLINDED) [Suspect]
     Indication: RHEUMATOID ARTHRITIS
     Route: 042
     Dates: start: 20070327
  3. GOLIMUMAB (BLINDED) [Suspect]
     Route: 042
     Dates: start: 20070621
  4. GOLIMUMAB (BLINDED) [Suspect]
     Route: 042
     Dates: start: 20070814
  5. GOLIMUMAB (BLINDED) [Suspect]
     Route: 042
     Dates: start: 20070914
  6. GOLIMUMAB (BLINDED) [Suspect]
     Route: 042
     Dates: start: 20071204
  7. GOLIMUMAB (BLINDED) [Suspect]
     Route: 042
     Dates: start: 20080228
  8. PLACEBO [Suspect]
     Indication: RHEUMATOID ARTHRITIS
     Route: 042
     Dates: start: 20070327
  9. PLACEBO [Suspect]
     Route: 042
     Dates: start: 20070621
  10. PLACEBO [Suspect]
     Route: 042
     Dates: start: 20070814
  11. PLACEBO [Suspect]
     Route: 042
     Dates: start: 20070914
  12. PLACEBO [Suspect]
     Route: 042
     Dates: start: 20071204
  13. PLACEBO [Suspect]
     Route: 042
     Dates: start: 20070228
  14. METHOTREXATE SODIUM [Suspect]
     Indication: RHEUMATOID ARTHRITIS
     Route: 048
     Dates: start: 20070312
  15. METHOTREXATE SODIUM [Suspect]
     Route: 048
     Dates: start: 20070402
  16. PLACEBO [Suspect]
     Route: 048
     Dates: start: 20070402
  17. FOLIC ACID [Concomitant]
     Indication: RHEUMATOID ARTHRITIS
     Route: 048
     Dates: start: 20050120
  18. NAPROXEN [Concomitant]
     Indication: RHEUMATOID ARTHRITIS
     Route: 048
     Dates: start: 20040101
  19. TEMAZEPAM [Concomitant]
     Indication: RHEUMATOID ARTHRITIS
     Route: 048
     Dates: start: 20080228
  20. RANITIDINE [Concomitant]
     Indication: DRUG USE FOR UNKNOWN INDICATION
     Route: 048

REACTIONS (9)
  - ACID FAST BACILLI INFECTION [None]
  - ARTHRITIS [None]
  - CHEST PAIN [None]
  - CHEST X-RAY ABNORMAL [None]
  - COUGH [None]
  - HILAR LYMPHADENOPATHY [None]
  - LYMPHADENOPATHY MEDIASTINAL [None]
  - PLEURAL EFFUSION [None]
  - PULMONARY MASS [None]
